FAERS Safety Report 13032829 (Version 1)
Quarter: 2016Q4

REPORT INFORMATION
  Report Type: Report from Study
  Country: None (occurrence: RO)
  Receive Date: 20161215
  Receipt Date: 20161215
  Transmission Date: 20170207
  Serious: Yes (Hospitalization)
  Sender: FDA-Public Use
  Company Number: RO-ABBVIE-16P-135-1806144-00

PATIENT
  Age: 82 Year
  Sex: Female

DRUGS (10)
  1. ENTEROL [Concomitant]
     Indication: DYSPEPSIA
     Route: 048
  2. VIEKIRAX [Suspect]
     Active Substance: OMBITASVIR\PARITAPREVIR\RITONAVIR
     Indication: HEPATITIS C
     Route: 048
     Dates: start: 20161026, end: 20161107
  3. EXVIERA [Suspect]
     Active Substance: DASABUVIR
     Indication: HEPATIC CIRRHOSIS
  4. CARVEDILOL. [Concomitant]
     Active Substance: CARVEDILOL
     Indication: CEREBROVASCULAR DISORDER
     Route: 048
  5. ASPENTER [Concomitant]
     Active Substance: ASPIRIN
     Indication: CARDIAC DISORDER
     Route: 048
  6. MONONITRON [Concomitant]
     Indication: CARDIAC DISORDER
     Route: 048
  7. PIRACETAM [Concomitant]
     Active Substance: PIRACETAM
     Indication: CEREBROVASCULAR DISORDER
     Route: 048
  8. SPIRONOLACTONA [Concomitant]
     Indication: CARDIAC DISORDER
     Route: 048
  9. VIEKIRAX [Suspect]
     Active Substance: OMBITASVIR\PARITAPREVIR\RITONAVIR
     Indication: HEPATIC CIRRHOSIS
  10. EXVIERA [Suspect]
     Active Substance: DASABUVIR
     Indication: HEPATITIS C
     Route: 048
     Dates: start: 20161026, end: 20161107

REACTIONS (6)
  - Asthenia [Not Recovered/Not Resolved]
  - Ocular icterus [Recovering/Resolving]
  - Activities of daily living impaired [Not Recovered/Not Resolved]
  - Hypotension [Not Recovered/Not Resolved]
  - Insomnia [Not Recovered/Not Resolved]
  - Pain in extremity [Not Recovered/Not Resolved]

NARRATIVE: CASE EVENT DATE: 20161129
